FAERS Safety Report 5043218-X (Version None)
Quarter: 2006Q3

REPORT INFORMATION
  Report Type: 
  Country: None (occurrence: None)
  Receive Date: 20060703
  Receipt Date: 20060703
  Transmission Date: 20061208
  Serious: Yes (Life-Threatening, Hospitalization, Other)
  Sender: FDA-Public Use
  Company Number: None

PATIENT
  Sex: Male
  Weight: 79.3795 kg

DRUGS (6)
  1. CYMBALTA [Suspect]
     Indication: BIPOLAR DISORDER
     Dosage: 30 MG   1/DAY   PO     (SINGLE DOSE)
     Route: 048
  2. CYMBALTA [Suspect]
     Indication: DEPRESSION
     Dosage: 30 MG   1/DAY   PO     (SINGLE DOSE)
     Route: 048
  3. DEPAKOTE ER [Concomitant]
  4. PAXIL CR [Concomitant]
  5. LORAZEPAM [Concomitant]
  6. AMBIEN [Concomitant]

REACTIONS (7)
  - ABNORMAL BEHAVIOUR [None]
  - DELIRIUM [None]
  - EMOTIONAL DISTRESS [None]
  - FEELING GUILTY [None]
  - FEELING OF DESPAIR [None]
  - MULTIPLE DRUG OVERDOSE [None]
  - SUICIDAL IDEATION [None]
